FAERS Safety Report 10435205 (Version 2)
Quarter: 2014Q4

REPORT INFORMATION
  Report Type: Spontaneous
  Country: JP (occurrence: JP)
  Receive Date: 20140907
  Receipt Date: 20141121
  Transmission Date: 20150528
  Serious: Yes (Hospitalization)
  Sender: FDA-Public Use
  Company Number: PHHY2013JP162161

PATIENT
  Age: 4 Year
  Sex: Male

DRUGS (4)
  1. ILARIS [Suspect]
     Active Substance: CANAKINUMAB
     Indication: MUCKLE-WELLS SYNDROME
     Dosage: 2 MG/KG, DAILY
     Route: 065
     Dates: start: 20130530
  2. ILARIS [Suspect]
     Active Substance: CANAKINUMAB
     Dosage: 4 MG/KG, DAILY
     Route: 065
  3. ILARIS [Suspect]
     Active Substance: CANAKINUMAB
     Dosage: 6 MG/KG, DAILY
     Route: 065
  4. AMPICILLIN+SULBACTAM [Concomitant]
     Active Substance: AMPICILLIN SODIUM\SULBACTAM SODIUM
     Indication: LYMPHADENITIS BACTERIAL
     Dosage: UNK
     Route: 065

REACTIONS (4)
  - Serum amyloid A protein increased [Recovered/Resolved]
  - C-reactive protein increased [Recovered/Resolved]
  - Lymphadenitis bacterial [Unknown]
  - Inflammation [Recovered/Resolved]

NARRATIVE: CASE EVENT DATE: 201306
